FAERS Safety Report 21265746 (Version 1)
Quarter: 2022Q3

REPORT INFORMATION
  Report Type: Spontaneous
  Country: US (occurrence: US)
  Receive Date: 20220829
  Receipt Date: 20220829
  Transmission Date: 20221027
  Serious: No
  Sender: FDA-Public Use
  Company Number: US-PFIZER INC-202201095588

PATIENT
  Age: 51 Year
  Sex: Female

DRUGS (1)
  1. IBRANCE [Suspect]
     Active Substance: PALBOCICLIB
     Dosage: 100 MG, CYCLIC (TAKE 1 TABLET DAILY FOR 3 WEEKS ON, 1 WEEK OFF)
     Route: 048

REACTIONS (4)
  - Palpitations [Unknown]
  - Supraventricular tachycardia [Unknown]
  - Stomatitis [Unknown]
  - Alopecia [Unknown]
